FAERS Safety Report 8444517-1 (Version None)
Quarter: 2012Q2

REPORT INFORMATION
  Report Type: 
  Country: None (occurrence: None)
  Receive Date: 20120618
  Receipt Date: 20120613
  Transmission Date: 20120825
  Serious: No
  Sender: FDA-Public Use
  Company Number: US-PFIZER INC-2012098486

PATIENT
  Sex: Female

DRUGS (3)
  1. CELEBREX [Concomitant]
     Dosage: UNK
  2. EFFEXOR XR [Suspect]
     Indication: ANXIETY
     Dosage: 75 MG, THREE TO FOUR TIMES A DAY
     Route: 048
     Dates: end: 20120401
  3. EFFEXOR XR [Suspect]
     Indication: DEPRESSION

REACTIONS (3)
  - TREMOR [None]
  - ANXIETY [None]
  - IRRITABILITY [None]
